FAERS Safety Report 12819145 (Version 2)
Quarter: 2016Q4

REPORT INFORMATION
  Report Type: Spontaneous
  Country: AR (occurrence: AR)
  Receive Date: 20161006
  Receipt Date: 20161019
  Transmission Date: 20170207
  Serious: Yes (Other)
  Sender: FDA-Public Use
  Company Number: AR-JNJFOC-20161003404

PATIENT
  Sex: Female

DRUGS (1)
  1. SIMPONI [Suspect]
     Active Substance: GOLIMUMAB
     Indication: RHEUMATOID ARTHRITIS
     Route: 058
     Dates: start: 201509

REACTIONS (6)
  - Wrist deformity [Unknown]
  - Foot deformity [Unknown]
  - Motor dysfunction [Unknown]
  - Inflammation [Unknown]
  - Epilepsy [Unknown]
  - Pain [Unknown]

NARRATIVE: CASE EVENT DATE: 20160909
